FAERS Safety Report 4493222-5 (Version None)
Quarter: 2004Q4

REPORT INFORMATION
  Report Type: 
  Country: None (occurrence: None)
  Receive Date: 20041025
  Receipt Date: 20040916
  Transmission Date: 20050328
  Serious: No
  Sender: FDA-Public Use
  Company Number: WSDF_00449

PATIENT
  Age: 59 Year
  Sex: Male

DRUGS (1)
  1. WINRHO SDF [Suspect]

REACTIONS (2)
  - CHILLS [None]
  - HAEMOGLOBIN DECREASED [None]
